FAERS Safety Report 6468776-X (Version None)
Quarter: 2009Q4

REPORT INFORMATION
  Report Type: 
  Country: None (occurrence: None)
  Receive Date: 20091203
  Receipt Date: 20061019
  Transmission Date: 20100525
  Serious: Yes (Death)
  Sender: FDA-Public Use
  Company Number: JP-ELI_LILLY_AND_COMPANY-JP200609004208

PATIENT
  Sex: Male

DRUGS (3)
  1. OLANZAPINE FINE GRANULES [Suspect]
     Indication: SCHIZOPHRENIA
     Dosage: 10 MG, DAILY (1/D)
     Route: 048
     Dates: start: 20060905, end: 20060907
  2. OLANZAPINE FINE GRANULES [Suspect]
     Dosage: 10 MG, DAILY (1/D)
     Route: 048
     Dates: start: 20060908
  3. ARTANE [Concomitant]
     Indication: EXTRAPYRAMIDAL DISORDER
     Dosage: 4 MG, DAILY (1/D)
     Route: 048
     Dates: start: 20060905, end: 20060907

REACTIONS (1)
  - DEATH [None]
